FAERS Safety Report 5328706-0 (Version None)
Quarter: 2007Q2

REPORT INFORMATION
  Report Type: 
  Country: None (occurrence: None)
  Receive Date: 20070518
  Receipt Date: 20070511
  Transmission Date: 20071010
  Serious: Yes (Other)
  Sender: FDA-Public Use
  Company Number: D0052607A

PATIENT
  Age: 70 Year
  Sex: Female

DRUGS (5)
  1. AVANDIA [Suspect]
     Dosage: 8MG PER DAY
     Route: 048
     Dates: start: 20030101
  2. GLYBURIDE [Concomitant]
     Route: 048
     Dates: start: 20060101, end: 20060601
  3. METFORMIN HCL [Concomitant]
     Route: 048
     Dates: start: 20060101, end: 20060601
  4. CLAVERSAL [Concomitant]
     Indication: CROHN'S DISEASE
     Dosage: 500MG PER DAY
     Route: 048
  5. AMARYL [Concomitant]
     Dosage: 2MG PER DAY
     Route: 048

REACTIONS (5)
  - BLOOD CHOLESTEROL INCREASED [None]
  - COMMINUTED FRACTURE [None]
  - FOOT FRACTURE [None]
  - JOINT SPRAIN [None]
  - WEIGHT INCREASED [None]
